FAERS Safety Report 24835327 (Version 2)
Quarter: 2025Q1

REPORT INFORMATION
  Report Type: Spontaneous
  Country: US (occurrence: US)
  Receive Date: 20250113
  Receipt Date: 20250113
  Transmission Date: 20250408
  Serious: Yes (Hospitalization, Other)
  Sender: ROCHE
  Company Number: US-ROCHE-10000176899

PATIENT
  Age: 31 Year
  Sex: Male

DRUGS (3)
  1. COTELLIC [Suspect]
     Active Substance: COBIMETINIB FUMARATE
     Indication: Malignant melanoma
     Route: 048
     Dates: start: 202412
  2. COTELLIC [Suspect]
     Active Substance: COBIMETINIB FUMARATE
     Indication: Skin cancer
  3. ZELBORAF [Suspect]
     Active Substance: VEMURAFENIB
     Indication: Product used for unknown indication
     Route: 048
     Dates: start: 202412

REACTIONS (2)
  - Rash [Unknown]
  - Hypersensitivity [Unknown]

NARRATIVE: CASE EVENT DATE: 20241223
